FAERS Safety Report 5043648-6 (Version None)
Quarter: 2006Q2

REPORT INFORMATION
  Report Type: 
  Country: None (occurrence: None)
  Receive Date: 20060601
  Receipt Date: 20060327
  Transmission Date: 20061013
  Serious: No
  Sender: FDA-Public Use
  Company Number: 2006PV007793

PATIENT
  Age: 54 Year
  Sex: Female
  Weight: 107.9561 kg

DRUGS (9)
  1. BYETTA [Suspect]
     Indication: GLUCOSE TOLERANCE IMPAIRED
     Dosage: SEE IMAGE
     Route: 058
     Dates: start: 20051101, end: 20051201
  2. BYETTA [Suspect]
     Indication: GLUCOSE TOLERANCE IMPAIRED
     Dosage: SEE IMAGE
     Route: 058
     Dates: start: 20051201, end: 20051201
  3. BYETTA [Suspect]
     Indication: GLUCOSE TOLERANCE IMPAIRED
     Dosage: SEE IMAGE
     Route: 058
     Dates: start: 20051220, end: 20060126
  4. BYETTA [Suspect]
     Indication: GLUCOSE TOLERANCE IMPAIRED
     Dosage: SEE IMAGE
     Route: 058
     Dates: start: 20060127
  5. LEVOXYL [Concomitant]
  6. COREG [Concomitant]
  7. ALTACE [Concomitant]
  8. ASPIRIN [Concomitant]
  9. LASIX [Concomitant]

REACTIONS (7)
  - ASTHENIA [None]
  - BLOOD GLUCOSE DECREASED [None]
  - DIZZINESS [None]
  - FATIGUE [None]
  - HYPOAESTHESIA [None]
  - INJECTION SITE PAIN [None]
  - NAUSEA [None]
